FAERS Safety Report 21408134 (Version 2)
Quarter: 2022Q4

REPORT INFORMATION
  Report Type: Spontaneous
  Country: US (occurrence: None)
  Receive Date: 20221004
  Receipt Date: 20221118
  Transmission Date: 20230112
  Serious: No
  Sender: FDA-Public Use
  Company Number: 2022A313717

PATIENT
  Age: 28769 Day
  Sex: Male

DRUGS (2)
  1. BUDESONIDE\FORMOTEROL [Suspect]
     Active Substance: BUDESONIDE\FORMOTEROL
     Indication: Pulmonary function test abnormal
     Dosage: 80/4.5UG, TWO TIMES A DAY
     Route: 055
     Dates: start: 20220901
  2. SYMBICORT [Suspect]
     Active Substance: BUDESONIDE\FORMOTEROL FUMARATE DIHYDRATE
     Indication: Dyspnoea
     Dosage: AS REQUIRED
     Route: 055

REACTIONS (6)
  - Visual impairment [Unknown]
  - Off label use [Recovered/Resolved]
  - Intentional device misuse [Unknown]
  - Device malfunction [Unknown]
  - Drug dose omission by device [Not Recovered/Not Resolved]
  - Wrong technique in device usage process [Unknown]

NARRATIVE: CASE EVENT DATE: 20220901
